FAERS Safety Report 17391390 (Version 1)
Quarter: 2020Q1

REPORT INFORMATION
  Report Type: Spontaneous
  Country: DE (occurrence: DE)
  Receive Date: 20200207
  Receipt Date: 20200207
  Transmission Date: 20200409
  Serious: Yes (Other)
  Sender: FDA-Public Use
  Company Number: DE-AMGEN-DEUSP2020018973

PATIENT

DRUGS (3)
  1. NEULASTA [Suspect]
     Active Substance: PEGFILGRASTIM
     Dosage: 18 MILLIGRAM, (MORNING OF DAY 1)
     Route: 058
  2. NEULASTA [Suspect]
     Active Substance: PEGFILGRASTIM
     Indication: HAEMATOPOIETIC STEM CELL MOBILISATION
     Dosage: 12 MILLIGRAM, (MORNING OF DAY 1)
     Route: 058
  3. NEUPOGEN [Suspect]
     Active Substance: FILGRASTIM
     Indication: HAEMATOPOIETIC STEM CELL MOBILISATION
     Dosage: 10 MICROGRAM/KILOGRAM
     Route: 065

REACTIONS (18)
  - Acute graft versus host disease [Unknown]
  - Hyperleukocytosis [Unknown]
  - Lymphocyte count increased [Unknown]
  - Injection site reaction [Unknown]
  - Fatigue [Unknown]
  - Blood alkaline phosphatase increased [Recovered/Resolved]
  - Drug ineffective for unapproved indication [Unknown]
  - Hyperhidrosis [Unknown]
  - Alanine aminotransferase increased [Recovered/Resolved]
  - Insomnia [Unknown]
  - Bone pain [Unknown]
  - Hypotension [Unknown]
  - Headache [Unknown]
  - Neutrophilia [Unknown]
  - Aspartate aminotransferase increased [Recovered/Resolved]
  - Blood lactate dehydrogenase increased [Recovered/Resolved]
  - Monocyte count increased [Unknown]
  - Off label use [Unknown]
